FAERS Safety Report 8437750-6 (Version None)
Quarter: 2012Q2

REPORT INFORMATION
  Report Type: 
  Country: None (occurrence: None)
  Receive Date: 20120614
  Receipt Date: 20120423
  Transmission Date: 20120825
  Serious: No
  Sender: FDA-Public Use
  Company Number: US-GLAXOSMITHKLINE-A0974779A

PATIENT
  Age: 33 Year
  Sex: Male

DRUGS (1)
  1. NICORETTE (MINT) [Suspect]
     Indication: EX-TOBACCO USER
     Route: 048
     Dates: start: 20120416, end: 20120418

REACTIONS (5)
  - FEELING JITTERY [None]
  - NERVOUSNESS [None]
  - DISCOMFORT [None]
  - ASTHENIA [None]
  - FEELING ABNORMAL [None]
